FAERS Safety Report 5716445-3 (Version None)
Quarter: 2008Q2

REPORT INFORMATION
  Report Type: 
  Country: None (occurrence: None)
  Receive Date: 20080415
  Receipt Date: 20070223
  Transmission Date: 20081010
  Serious: Yes (Other)
  Sender: FDA-Public Use
  Company Number: 2007-00954

PATIENT
  Age: 30 Year
  Sex: Female

DRUGS (3)
  1. FERRLECIT [Suspect]
     Indication: IRON DEFICIENCY
     Dosage: 250 MG/250 ML NS IVPB OVER 1 HR, INTRAVENOUS
     Route: 042
     Dates: start: 20061211, end: 20061211
  2. COUMADIN [Concomitant]
  3. CELLCEPT [Concomitant]

REACTIONS (5)
  - ANAPHYLACTOID REACTION [None]
  - ASTHENIA [None]
  - HYPOAESTHESIA [None]
  - HYPOTENSION [None]
  - PARAESTHESIA [None]
